FAERS Safety Report 4390089-0 (Version None)
Quarter: 2004Q3

REPORT INFORMATION
  Report Type: 
  Country: None (occurrence: None)
  Receive Date: 20040706
  Receipt Date: 20040623
  Transmission Date: 20050211
  Serious: Yes (Hospitalization)
  Sender: FDA-Public Use
  Company Number: ES-AMGEN-US081656

PATIENT
  Sex: Female
  Weight: 66.5 kg

DRUGS (3)
  1. ETANERCEPT [Suspect]
     Indication: RHEUMATOID ARTHRITIS
     Route: 058
     Dates: start: 20010301, end: 20040614
  2. FOLIC ACID [Concomitant]
     Dates: start: 20040416
  3. LEVOTHYROXINE SODIUM [Concomitant]
     Dates: start: 20040314

REACTIONS (1)
  - NASAL POLYPS [None]
